FAERS Safety Report 6130155-2 (Version None)
Quarter: 2009Q1

REPORT INFORMATION
  Report Type: 
  Country: None (occurrence: None)
  Receive Date: 20090324
  Receipt Date: 20090317
  Transmission Date: 20090719
  Serious: Yes (Hospitalization)
  Sender: FDA-Public Use
  Company Number: JP-BRISTOL-MYERS SQUIBB COMPANY-14554729

PATIENT
  Age: 74 Year
  Sex: Male
  Weight: 39 kg

DRUGS (10)
  1. ERBITUX [Suspect]
     Indication: RECTAL CANCER
     Dosage: 2ND INF 21NOV08(367.5 MG/M2);RECENT INF 27NOV08
     Route: 042
     Dates: start: 20081113, end: 20081127
  2. IRINOTECAN HCL [Concomitant]
     Indication: RECTAL CANCER
     Dosage: 1ST INF 13NOV08 220MG/M2; 2ND INF 27NOV08
     Route: 042
     Dates: start: 20081113
  3. CHLOR-TRIMETON [Concomitant]
     Indication: PREMEDICATION
     Route: 042
     Dates: start: 20081113
  4. DECADRON [Concomitant]
     Indication: PREMEDICATION
     Dosage: 20NOV08-10FEB09(82DAYS)PO;4MG(STRENGTH-2MG);FORM=TABS
     Route: 042
     Dates: start: 20081113
  5. KYTRIL [Concomitant]
     Indication: PREMEDICATION
     Route: 042
     Dates: start: 20081113, end: 20081211
  6. NASEA [Concomitant]
     Dosage: FORM=TABS
     Route: 048
     Dates: start: 20081120, end: 20090210
  7. LOXONIN [Concomitant]
     Dosage: FORM=TABS; 2 DIVIDED DOSES OF 60MG
     Route: 048
  8. MUCOSOLVAN [Concomitant]
     Dosage: FORM=TABS; STRENGTH = 15MG
     Route: 048
  9. HUSTAZOL [Concomitant]
     Dosage: FORM=TABS; STRENGTH = 10MG
     Route: 048
  10. OXINORM [Concomitant]
     Dosage: FORM=POWDER
     Route: 048
     Dates: start: 20080115

REACTIONS (1)
  - ANOREXIA [None]
